FAERS Safety Report 5449492-X (Version None)
Quarter: 2007Q3

REPORT INFORMATION
  Report Type: 
  Country: None (occurrence: None)
  Receive Date: 20070907
  Receipt Date: 20070825
  Transmission Date: 20080115
  Serious: Yes (Other)
  Sender: FDA-Public Use
  Company Number: CHNY2007BR02981

PATIENT
  Age: 3 Year
  Sex: Female

DRUGS (1)
  1. CLEMASTINE FUMARATE [Suspect]
     Dosage: 5 ML, QD
     Dates: start: 20070801

REACTIONS (5)
  - CONDITION AGGRAVATED [None]
  - PRURITUS [None]
  - SWELLING [None]
  - SWOLLEN TONGUE [None]
  - TONGUE BLISTERING [None]
